FAERS Safety Report 10574768 (Version 3)
Quarter: 2014Q4

REPORT INFORMATION
  Report Type: Spontaneous
  Country: US (occurrence: US)
  Receive Date: 20141110
  Receipt Date: 20141124
  Transmission Date: 20150529
  Serious: Yes (Hospitalization, Other)
  Sender: FDA-Public Use
  Company Number: US-GILEAD-2014-0121817

PATIENT
  Age: 43 Year
  Sex: Male

DRUGS (3)
  1. LETAIRIS [Suspect]
     Active Substance: AMBRISENTAN
     Indication: PRODUCT USED FOR UNKNOWN INDICATION
     Dosage: 5 MG, QD
     Route: 065
     Dates: start: 20141015
  2. REMODULIN [Concomitant]
     Active Substance: TREPROSTINIL
     Dosage: 10 UNK, UNK
     Route: 042
  3. ADCIRCA [Concomitant]
     Active Substance: TADALAFIL

REACTIONS (19)
  - Chills [Unknown]
  - Sinus congestion [Unknown]
  - Cyanosis [Unknown]
  - Asthenia [Unknown]
  - Depressed mood [Unknown]
  - Skin injury [Unknown]
  - Skin abrasion [Unknown]
  - Clostridium difficile infection [Unknown]
  - Dyspnoea [Unknown]
  - Cough [Unknown]
  - Skin haemorrhage [Unknown]
  - Headache [Unknown]
  - Heart rate increased [Unknown]
  - Skin irritation [Unknown]
  - Device related infection [Unknown]
  - Pain [Unknown]
  - Sepsis [Unknown]
  - Unresponsive to stimuli [Unknown]
  - Pyrexia [Unknown]
